FAERS Safety Report 26057913 (Version 1)
Quarter: 2025Q4

REPORT INFORMATION
  Report Type: Spontaneous
  Country: CN (occurrence: CN)
  Receive Date: 20251118
  Receipt Date: 20251118
  Transmission Date: 20260118
  Serious: Yes (Life-Threatening, Hospitalization, Other)
  Sender: ALKEM
  Company Number: CN-ALKEM LABORATORIES LIMITED-CN-ALKEM-2025-12008

PATIENT
  Age: 15 Year
  Sex: Female

DRUGS (2)
  1. AMLODIPINE BESYLATE [Suspect]
     Active Substance: AMLODIPINE BESYLATE
     Indication: Product used for unknown indication
     Dosage: 100 DOSAGE FORM (EXTENDED-RELEASE TABLETS)
     Route: 048
  2. METOPROLOL SUCCINATE [Suspect]
     Active Substance: METOPROLOL SUCCINATE
     Indication: Product used for unknown indication
     Dosage: 35 DOSAGE FORM (35 EXTENDED-RELEASE TABLETS)
     Route: 048

REACTIONS (8)
  - Acute respiratory distress syndrome [Recovering/Resolving]
  - Non-cardiogenic pulmonary oedema [Recovered/Resolved]
  - Suicide attempt [Unknown]
  - Shock [Unknown]
  - Toxicity to various agents [Recovering/Resolving]
  - Dizziness [Unknown]
  - Hypotension [Recovering/Resolving]
  - Intentional overdose [Unknown]
